FAERS Safety Report 9399300 (Version 2)
Quarter: 2013Q3

REPORT INFORMATION
  Report Type: Spontaneous
  Country: US (occurrence: None)
  Receive Date: 20130709
  Receipt Date: 20130717
  Transmission Date: 20140515
  Serious: Yes (Hospitalization)
  Sender: FDA-Public Use
  Company Number: AUR-APL-2013-05675

PATIENT
  Age: 17 Year
  Sex: Female

DRUGS (4)
  1. TOPIRAMATE [Suspect]
     Indication: JUVENILE MYOCLONIC EPILEPSY
     Dosage: 400 MG (200MG, 2 IN 1 D) UNKNOWN
  2. VALPROATE SEMISODIUM [Suspect]
     Indication: JUVENILE MYOCLONIC EPILEPSY
     Dosage: 1000MG (500 MG, 2 IN 1 D) UNKNOWN
  3. LEVETIRACETAM [Suspect]
     Indication: CONVULSION
  4. LORAZEPAM (LORAZEPAM) [Concomitant]

REACTIONS (10)
  - Confusional state [None]
  - Hypotension [None]
  - Bradycardia [None]
  - Acidosis hyperchloraemic [None]
  - Drug screen positive [None]
  - Electrocardiogram QT prolonged [None]
  - Ammonia increased [None]
  - Encephalopathy [None]
  - Hyperammonaemia [None]
  - Drug ineffective [None]
